FAERS Safety Report 6395183-0 (Version None)
Quarter: 2009Q4

REPORT INFORMATION
  Report Type: 
  Country: None (occurrence: None)
  Receive Date: 20091009
  Receipt Date: 20091001
  Transmission Date: 20100525
  Serious: Yes (Hospitalization, Other)
  Sender: FDA-Public Use
  Company Number: PHHY2009JP42529

PATIENT
  Sex: Female
  Weight: 66 kg

DRUGS (16)
  1. SIMULECT [Suspect]
     Indication: RENAL TRANSPLANT
     Dosage: 20 MG, UNK
     Route: 042
     Dates: start: 20090203, end: 20090203
  2. SIMULECT [Suspect]
     Dosage: 20 MG, UNK
     Route: 042
     Dates: start: 20090207, end: 20090207
  3. NEORAL [Suspect]
     Indication: RENAL TRANSPLANT
     Dosage: 280 MG DAILY
     Route: 048
     Dates: start: 20090209
  4. PREDONINE [Suspect]
     Indication: RENAL TRANSPLANT
     Dosage: 50 MG DAILY
     Dates: start: 20090206
  5. BREDININ [Suspect]
     Indication: RENAL TRANSPLANT
     Dosage: 150 MG DAILY
     Route: 048
     Dates: start: 20090203
  6. SANDIMMUNE [Concomitant]
     Indication: RENAL TRANSPLANT
     Dosage: 60 MG, UNK
     Route: 042
     Dates: start: 20090203, end: 20090209
  7. SOLU-MEDROL [Concomitant]
     Indication: RENAL TRANSPLANT
     Dosage: 625 MG, UNK
     Route: 042
     Dates: start: 20090203
  8. SOLU-MEDROL [Concomitant]
     Dosage: 250 MG, UNK
     Route: 042
  9. SOLU-MEDROL [Concomitant]
     Dosage: 125 MG, UNK
     Route: 042
     Dates: end: 20090205
  10. PENTCILLIN [Concomitant]
     Indication: INFECTION PROPHYLAXIS
     Dosage: 2 G, UNK
     Route: 042
     Dates: start: 20090203, end: 20090205
  11. ZANTAC [Concomitant]
     Indication: PROPHYLAXIS AGAINST GASTROINTESTINAL ULCER
     Dosage: 2 DF, UNK
     Route: 042
     Dates: start: 20090203, end: 20090205
  12. ZANTAC [Concomitant]
     Indication: INFECTION PROPHYLAXIS
     Dosage: 2 DF, UNK
     Route: 048
     Dates: start: 20090206
  13. ALBUMIN (HUMAN) [Concomitant]
     Indication: HYPOALBUMINAEMIA
     Dosage: 100 ML, UNK
     Route: 042
     Dates: start: 20090203, end: 20090205
  14. HUMALOG N [Concomitant]
     Indication: DIABETES MELLITUS
     Dosage: 12 DF, UNK
     Route: 058
     Dates: start: 20090209
  15. HUMULIN R [Concomitant]
     Indication: DIABETES MELLITUS
     Dosage: 2 DF, UNK
     Route: 058
     Dates: start: 20090203, end: 20090208
  16. LANTUS [Concomitant]
     Indication: DIABETES MELLITUS
     Dosage: 4 DF, UNK
     Route: 058
     Dates: start: 20090209

REACTIONS (11)
  - ASTHENIA [None]
  - BLADDER CATHETERISATION [None]
  - CHEST DISCOMFORT [None]
  - CHRONIC ALLOGRAFT NEPHROPATHY [None]
  - CYTOMEGALOVIRUS VIRAEMIA [None]
  - DIALYSIS [None]
  - HYDRONEPHROSIS [None]
  - HYPERKALAEMIA [None]
  - KIDNEY TRANSPLANT REJECTION [None]
  - URETERIC STENOSIS [None]
  - URINE OUTPUT DECREASED [None]
